FAERS Safety Report 7028277-7 (Version None)
Quarter: 2010Q4

REPORT INFORMATION
  Report Type: 
  Country: None (occurrence: None)
  Receive Date: 20101005
  Receipt Date: 20100923
  Transmission Date: 20110411
  Serious: Yes (Hospitalization)
  Sender: FDA-Public Use
  Company Number: FR-PFIZER INC-2010120712

PATIENT
  Age: 66 Year
  Sex: Female

DRUGS (7)
  1. LYRICA [Suspect]
     Dosage: UNK
     Route: 048
  2. AMIODARONE [Suspect]
     Dosage: 1 DF, 1X/DAY
     Route: 048
     Dates: end: 20100817
  3. ADANCOR [Suspect]
     Dosage: UNK
  4. AMLODIPINE [Concomitant]
     Dosage: 10 MG, UNK
     Route: 048
  5. CRESTOR [Concomitant]
     Dosage: UNK
  6. FUROSEMIDE [Concomitant]
     Dosage: UNK
     Route: 048
  7. PRASUGREL [Concomitant]
     Dosage: UNK
     Route: 048

REACTIONS (1)
  - INTERSTITIAL LUNG DISEASE [None]
